FAERS Safety Report 8155276-4 (Version None)
Quarter: 2012Q1

REPORT INFORMATION
  Report Type: 
  Country: None (occurrence: None)
  Receive Date: 20120222
  Receipt Date: 20120213
  Transmission Date: 20120608
  Serious: No
  Sender: FDA-Public Use
  Company Number: US-BIOGENIDEC-2012BI005713

PATIENT
  Age: 54 Year
  Sex: Female

DRUGS (3)
  1. MUCINEX [Concomitant]
     Indication: MULTIPLE ALLERGIES
  2. ALLEGRA [Concomitant]
     Indication: MULTIPLE ALLERGIES
  3. TYSABRI [Suspect]
     Indication: MULTIPLE SCLEROSIS
     Route: 042
     Dates: start: 20101215

REACTIONS (2)
  - HEADACHE [None]
  - MENIERE'S DISEASE [None]
